FAERS Safety Report 6902188-7 (Version None)
Quarter: 2010Q3

REPORT INFORMATION
  Report Type: 
  Country: None (occurrence: None)
  Receive Date: 20100803
  Receipt Date: 20080424
  Transmission Date: 20110219
  Serious: No
  Sender: FDA-Public Use
  Company Number: US-PFIZER INC-2008036140

PATIENT
  Sex: Female
  Weight: 79.1 kg

DRUGS (9)
  1. LYRICA [Suspect]
     Indication: FIBROMYALGIA
     Dates: start: 20080401
  2. LAMICTAL [Concomitant]
  3. WELLBUTRIN [Concomitant]
  4. PAXIL [Concomitant]
  5. ESTRADIOL [Concomitant]
  6. MEDROXYPROGESTERONE [Concomitant]
  7. METFORMIN HCL [Concomitant]
  8. AMBIEN [Concomitant]
  9. HYDROCODONE BITARTRATE [Concomitant]

REACTIONS (1)
  - WEIGHT INCREASED [None]
